FAERS Safety Report 8973572 (Version 1)
Quarter: 2012Q4

REPORT INFORMATION
  Report Type: 
  Country: US (occurrence: US)
  Receive Date: 20121218
  Receipt Date: 20121218
  Transmission Date: 20130627
  Serious: No
  Sender: FDA-Public Use
  Company Number: US-BRISTOL-MYERS SQUIBB COMPANY-16418444

PATIENT
  Age: 56 Year
  Sex: Female

DRUGS (8)
  1. ABILIFY TABS 5 MG [Suspect]
     Indication: MAJOR DEPRESSION
     Dosage: Initiated 2mg,for about 3 years(since 2009),adjunctive therapy
     Dates: start: 2009
  2. WELLBUTRIN [Concomitant]
  3. RITALIN [Concomitant]
  4. CYMBALTA [Concomitant]
  5. TRAZODONE HCL [Concomitant]
  6. NEXIUM [Concomitant]
  7. KLONOPIN [Concomitant]
  8. MAXALT [Concomitant]

REACTIONS (6)
  - Hepatic enzyme increased [Unknown]
  - Sluggishness [Unknown]
  - Asthenia [Unknown]
  - Night sweats [Unknown]
  - Antinuclear antibody positive [Unknown]
  - Blood iron increased [Unknown]
